FAERS Safety Report 15323245 (Version 1)
Quarter: 2018Q3

REPORT INFORMATION
  Report Type: Spontaneous
  Country: US (occurrence: US)
  Receive Date: 20180827
  Receipt Date: 20180827
  Transmission Date: 20181010
  Serious: Yes (Hospitalization, Other)
  Sender: FDA-Public Use
  Company Number: US-PFIZER INC-2018340181

PATIENT
  Age: 51 Year
  Sex: Female
  Weight: 99.79 kg

DRUGS (3)
  1. SINEMET [Concomitant]
     Active Substance: CARBIDOPA\LEVODOPA
     Indication: PARKINSON^S DISEASE
     Dosage: [CARBIDOPA 50MG]/[LEVODOPA 200MG], I TAKE ONE AT 4 AM ONE AT 7 AM, 10 AM, ONE PM, 4 PM AND 7 PM.
  2. REQUIP [Concomitant]
     Active Substance: ROPINIROLE HYDROCHLORIDE
     Indication: PARKINSON^S DISEASE
     Dosage: 1 DF, 2X/DAY
  3. LYRICA [Suspect]
     Active Substance: PREGABALIN
     Indication: FIBROMYALGIA
     Dosage: 150 MG, 2X/DAY
     Route: 048

REACTIONS (4)
  - Hypoaesthesia [Recovering/Resolving]
  - Movement disorder [Unknown]
  - Multiple sclerosis [Unknown]
  - Paraesthesia [Recovering/Resolving]

NARRATIVE: CASE EVENT DATE: 20180817
